FAERS Safety Report 4462186-2 (Version None)
Quarter: 2004Q3

REPORT INFORMATION
  Report Type: 
  Country: None (occurrence: None)
  Receive Date: 20040920
  Receipt Date: 20040908
  Transmission Date: 20050211
  Serious: Yes (Hospitalization)
  Sender: FDA-Public Use
  Company Number: ALB/04/03/USA

PATIENT
  Age: 20 Year
  Sex: Female
  Weight: 66.2252 kg

DRUGS (9)
  1. ALBUMIN (HUMAN) [Suspect]
     Indication: INFUSION
     Dosage: I.V.
     Route: 042
  2. ALBUMIN (HUMAN) [Suspect]
  3. ALBUMIN (HUMAN) [Suspect]
  4. PANHEMATIN (HEMATIN) [Suspect]
     Indication: PORPHYRIA ACUTE
     Dosage: 200 MG, TIW
  5. DEXTROSE [Concomitant]
  6. ZOFRAN [Concomitant]
  7. DIPHENHYDRAMINE (D-IPHENHYDRAMINE) [Concomitant]
  8. PROTONIX ^PHARMACIA^ (PANTOPRAZOLE) [Concomitant]
  9. FULVITE (FOLIC ACID) [Concomitant]

REACTIONS (4)
  - BACTERIAL INFECTION [None]
  - CULTURE URINE POSITIVE [None]
  - PYREXIA [None]
  - STAPHYLOCOCCAL BACTERAEMIA [None]
